FAERS Safety Report 13509725 (Version 1)
Quarter: 2017Q2

REPORT INFORMATION
  Report Type: Spontaneous
  Country: US (occurrence: US)
  Receive Date: 20170503
  Receipt Date: 20170503
  Transmission Date: 20170830
  Serious: No
  Sender: FDA-Public Use
  Company Number: US-SA-2017SA072454

PATIENT
  Sex: Female

DRUGS (2)
  1. ALIROCUMAB PREFILLED PEN [Concomitant]
     Active Substance: ALIROCUMAB
     Dates: start: 20170303
  2. PRALUENT [Suspect]
     Active Substance: ALIROCUMAB
     Route: 058
     Dates: start: 20170303

REACTIONS (2)
  - Migraine [Unknown]
  - Pain in extremity [Unknown]

NARRATIVE: CASE EVENT DATE: 2017
